FAERS Safety Report 12170349 (Version 2)
Quarter: 2016Q2

REPORT INFORMATION
  Report Type: Report from Study
  Country: US (occurrence: US)
  Receive Date: 20160311
  Receipt Date: 20160428
  Transmission Date: 20160815
  Serious: No
  Sender: FDA-Public Use
  Company Number: US-AMGEN-USASP2016028263

PATIENT
  Age: 59 Year
  Sex: Male

DRUGS (1)
  1. ENBREL [Suspect]
     Active Substance: ETANERCEPT
     Indication: PSORIATIC ARTHROPATHY
     Dosage: UNK
     Route: 065

REACTIONS (6)
  - Product preparation error [Unknown]
  - Injection site extravasation [Unknown]
  - Hypoacusis [Unknown]
  - Injection site discomfort [Unknown]
  - Underdose [Unknown]
  - Skin disorder [Recovering/Resolving]
